FAERS Safety Report 25730461 (Version 2)
Quarter: 2025Q4

REPORT INFORMATION
  Report Type: Report from Study
  Country: None (occurrence: BR)
  Receive Date: 20250827
  Receipt Date: 20251014
  Transmission Date: 20260118
  Serious: Yes (Hospitalization)
  Sender: ALNYLAM PHARMACEUTICALS
  Company Number: BR-ALNYLAM PHARMACEUTICALS, INC.-ALN-2025-004272

PATIENT
  Age: 35 Year
  Weight: 87.4 kg

DRUGS (2)
  1. GIVLAARI [Suspect]
     Active Substance: GIVOSIRAN SODIUM
     Indication: Porphyria acute
     Dosage: UNK, MONTHLY (PRESENTATION: 189 MG/ML, EVERY 30 DAYS)
  2. GIVLAARI [Suspect]
     Active Substance: GIVOSIRAN SODIUM
     Dosage: UNK, MONTHLY

REACTIONS (7)
  - Hospitalisation [Unknown]
  - Pyrexia [Unknown]
  - Abdominal pain lower [Unknown]
  - Bacterial infection [Unknown]
  - Poor venous access [Unknown]
  - Malaise [Unknown]
  - Product dose omission issue [Unknown]
